FAERS Safety Report 18323744 (Version 1)
Quarter: 2020Q3

REPORT INFORMATION
  Report Type: Spontaneous
  Country: US (occurrence: US)
  Receive Date: 20200928
  Receipt Date: 20200928
  Transmission Date: 20201103
  Serious: Yes (Other)
  Sender: FDA-Public Use
  Company Number: US-PFIZER INC-2020370640

PATIENT
  Age: 40 Year
  Sex: Female
  Weight: 104.33 kg

DRUGS (1)
  1. PROVERA [Suspect]
     Active Substance: MEDROXYPROGESTERONE ACETATE
     Indication: POLYCYSTIC OVARIES
     Dosage: UNK

REACTIONS (23)
  - Wound [Unknown]
  - Hypertension [Unknown]
  - Off label use [Unknown]
  - Urinary retention [Unknown]
  - Oral pain [Unknown]
  - Monoplegia [Unknown]
  - Dysphagia [Unknown]
  - Intentional product misuse [Unknown]
  - Cerebrovascular accident [Unknown]
  - Oral mucosal eruption [Unknown]
  - Pharyngeal enanthema [Unknown]
  - Neck pain [Unknown]
  - Mouth swelling [Unknown]
  - Product use in unapproved indication [Unknown]
  - Dyspnoea [Unknown]
  - Stomatitis [Unknown]
  - Stomatitis [Unknown]
  - Feeling abnormal [Unknown]
  - Intentional overdose [Unknown]
  - Amenorrhoea [Unknown]
  - Near death experience [Unknown]
  - Lip and/or oral cavity cancer [Unknown]
  - Teething [Unknown]

NARRATIVE: CASE EVENT DATE: 201808
